FAERS Safety Report 7264942-4 (Version None)
Quarter: 2011Q1

REPORT INFORMATION
  Report Type: 
  Country: None (occurrence: None)
  Receive Date: 20110131
  Receipt Date: 20110103
  Transmission Date: 20110831
  Serious: No
  Sender: FDA-Public Use
  Company Number: US-BAYER-2011-002737

PATIENT
  Sex: Male
  Weight: 70.295 kg

DRUGS (1)
  1. ULTRAVIST INJECTION PHARMACY BULK PACKAGE [Suspect]
     Indication: COMPUTERISED TOMOGRAM
     Dosage: 80 ML, UNK
     Route: 042
     Dates: start: 20101217, end: 20101217

REACTIONS (1)
  - URTICARIA [None]
